FAERS Safety Report 13710458 (Version 2)
Quarter: 2017Q3

REPORT INFORMATION
  Report Type: Spontaneous
  Country: DE (occurrence: DE)
  Receive Date: 20170703
  Receipt Date: 20170814
  Transmission Date: 20171127
  Serious: Yes (Other)
  Sender: FDA-Public Use
  Company Number: DE-TORRENT-00006639

PATIENT
  Age: 34 Year
  Sex: Female

DRUGS (1)
  1. LAMOTRIGINE. [Suspect]
     Active Substance: LAMOTRIGINE

REACTIONS (4)
  - Epileptic aura [Unknown]
  - Exposure during pregnancy [Unknown]
  - Product quality issue [Unknown]
  - Seizure [Unknown]
